FAERS Safety Report 22344812 (Version 1)
Quarter: 2023Q2

REPORT INFORMATION
  Report Type: Spontaneous
  Country: AT (occurrence: AT)
  Receive Date: 20230519
  Receipt Date: 20230519
  Transmission Date: 20230721
  Serious: Yes (Death, Other)
  Sender: FDA-Public Use
  Company Number: AT-BAXTER-2023BAX021648

PATIENT
  Age: 74 Year
  Sex: Male

DRUGS (2)
  1. REGIOCIT [Suspect]
     Active Substance: SODIUM CHLORIDE\SODIUM CITRATE
     Indication: Haemofiltration
     Dosage: 3000 ML OVER A PERIOD OF 6 HOURS
     Route: 065
  2. CALCIUM CHLORIDE\MAGNESIUM CHLORIDE\POTASSIUM CHLORIDE\SODIUM BICARBON [Suspect]
     Active Substance: CALCIUM CHLORIDE\MAGNESIUM CHLORIDE\POTASSIUM CHLORIDE\SODIUM BICARBONATE\SODIUM CHLORIDE\SODIUM PHO
     Indication: Haemofiltration
     Route: 065

REACTIONS (3)
  - Death [Fatal]
  - Wrong product administered [Unknown]
  - Product confusion [Unknown]

NARRATIVE: CASE EVENT DATE: 20230410
